FAERS Safety Report 6810192-2 (Version None)
Quarter: 2010Q2

REPORT INFORMATION
  Report Type: 
  Country: None (occurrence: None)
  Receive Date: 20100630
  Receipt Date: 20100625
  Transmission Date: 20101027
  Serious: Yes (Hospitalization)
  Sender: FDA-Public Use
  Company Number: CA-MERCK-1006USA04056

PATIENT
  Age: 74 Year
  Sex: Female

DRUGS (6)
  1. FOSAMAX [Suspect]
     Route: 048
  2. CALCIUM (UNSPECIFIED) [Concomitant]
     Route: 048
  3. ESTRACE [Concomitant]
     Route: 048
  4. METAMUCIL-2 [Concomitant]
     Route: 065
  5. VITAMINS (UNSPECIFIED) [Concomitant]
     Route: 048
  6. VITAMIN D (UNSPECIFIED) [Concomitant]
     Route: 048

REACTIONS (5)
  - CARDIAC FLUTTER [None]
  - CHEST PAIN [None]
  - DYSPEPSIA [None]
  - OESOPHAGEAL PAIN [None]
  - OESOPHAGEAL SPASM [None]
